FAERS Safety Report 22250647 (Version 6)
Quarter: 2023Q4

REPORT INFORMATION
  Report Type: Spontaneous
  Country: US (occurrence: US)
  Receive Date: 20230425
  Receipt Date: 20231025
  Transmission Date: 20240109
  Serious: Yes (Hospitalization)
  Sender: FDA-Public Use
  Company Number: US-PFIZER INC-PV202300025962

PATIENT
  Age: 63 Year
  Sex: Male
  Weight: 108.86 kg

DRUGS (5)
  1. LORBRENA [Suspect]
     Active Substance: LORLATINIB
     Indication: Lung neoplasm malignant
     Dosage: 100 MG, 1X/DAY
     Dates: start: 2016
  2. LORBRENA [Suspect]
     Active Substance: LORLATINIB
     Indication: Anaplastic large-cell lymphoma
  3. LORBRENA [Suspect]
     Active Substance: LORLATINIB
     Indication: ALK gene rearrangement positive
  4. LORBRENA [Suspect]
     Active Substance: LORLATINIB
     Indication: Lymphadenopathy
  5. LORBRENA [Suspect]
     Active Substance: LORLATINIB
     Indication: Neoplasm malignant

REACTIONS (2)
  - Asthenia [Unknown]
  - Malaise [Unknown]
